FAERS Safety Report 16029014 (Version 1)
Quarter: 2019Q1

REPORT INFORMATION
  Report Type: Spontaneous
  Country: FR (occurrence: FR)
  Receive Date: 20190304
  Receipt Date: 20190304
  Transmission Date: 20190418
  Serious: Yes (Hospitalization)
  Sender: FDA-Public Use
  Company Number: FR-TEVA-2019-FR-1017878

PATIENT
  Age: 90 Year
  Sex: Female
  Weight: 41.2 kg

DRUGS (7)
  1. ATARAX [Suspect]
     Active Substance: HYDROXYZINE HYDROCHLORIDE
     Indication: SLEEP DISORDER
     Dosage: 25 MILLIGRAM DAILY;
     Route: 048
     Dates: end: 20140116
  2. TRAMADOL BASE [Concomitant]
     Active Substance: TRAMADOL
     Indication: PAIN
     Dosage: 300 MILLIGRAM DAILY;
     Route: 048
  3. PLAVIX [Suspect]
     Active Substance: CLOPIDOGREL BISULFATE
     Indication: TRANSIENT ISCHAEMIC ATTACK
     Dosage: 75 MILLIGRAM DAILY;
     Route: 048
     Dates: end: 20140110
  4. EFFEXOR [Suspect]
     Active Substance: VENLAFAXINE HYDROCHLORIDE
     Indication: DEPRESSION
     Route: 048
     Dates: start: 201304
  5. CORTANCYL [Suspect]
     Active Substance: PREDNISONE
     Indication: POLYMYALGIA RHEUMATICA
     Dosage: 12 MILLIGRAM DAILY;
     Route: 048
     Dates: start: 201305, end: 20140113
  6. PANTOPRAZOLE [Suspect]
     Active Substance: PANTOPRAZOLE
     Indication: OESOPHAGITIS
     Dosage: 400 MILLIGRAM DAILY;
     Route: 048
     Dates: start: 2010, end: 20140113
  7. BISOPROLOL (FUMARATE ACIDE DE) [Suspect]
     Active Substance: BISOPROLOL FUMARATE
     Route: 048

REACTIONS (2)
  - Pancreatitis [Unknown]
  - Faecal vomiting [Unknown]

NARRATIVE: CASE EVENT DATE: 20131016
